FAERS Safety Report 9357066 (Version 3)
Quarter: 2013Q3

REPORT INFORMATION
  Report Type: Spontaneous
  Country: US (occurrence: US)
  Receive Date: 20130620
  Receipt Date: 20130809
  Transmission Date: 20140515
  Serious: Yes (Other)
  Sender: FDA-Public Use
  Company Number: US-BIOGENIDEC-2013BI053321

PATIENT
  Sex: Female
  Weight: 58 kg

DRUGS (12)
  1. TYSABRI [Suspect]
     Indication: MULTIPLE SCLEROSIS
     Route: 042
     Dates: start: 20080212, end: 20120918
  2. TYSABRI [Suspect]
     Indication: MULTIPLE SCLEROSIS
     Route: 042
     Dates: start: 20070220, end: 20070813
  3. AVONEX [Concomitant]
     Indication: MULTIPLE SCLEROSIS
     Route: 030
     Dates: start: 20020806
  4. AVONEX [Concomitant]
     Indication: MULTIPLE SCLEROSIS
     Route: 030
  5. BACLOFEN [Concomitant]
     Indication: MUSCLE SPASMS
     Route: 048
  6. CALCIUM 600+D [Concomitant]
  7. MACROBID [Concomitant]
     Indication: URINARY TRACT INFECTION
  8. MACRODANTIN [Concomitant]
     Indication: URINARY TRACT INFECTION
  9. MELATONIN [Concomitant]
     Route: 048
  10. MOTRIN [Concomitant]
     Route: 048
  11. POTASSIUM CHLORIDE [Concomitant]
  12. SUDAFED [Concomitant]
     Route: 048

REACTIONS (2)
  - Neoplasm malignant [Unknown]
  - Epilepsy [Unknown]
